FAERS Safety Report 18601258 (Version 1)
Quarter: 2020Q4

REPORT INFORMATION
  Report Type: Spontaneous
  Country: US (occurrence: US)
  Receive Date: 20201210
  Receipt Date: 20201210
  Transmission Date: 20210114
  Serious: No
  Sender: FDA-Public Use
  Company Number: US-AMERICAN REGENT INC-2019002875

PATIENT
  Sex: Female

DRUGS (3)
  1. VENOFER [Suspect]
     Active Substance: IRON SUCROSE
     Dosage: UNK
     Route: 042
     Dates: start: 20191216, end: 20191216
  2. VENOFER [Suspect]
     Active Substance: IRON SUCROSE
     Dosage: UNK
     Route: 042
     Dates: start: 20191217, end: 20191217
  3. VENOFER [Suspect]
     Active Substance: IRON SUCROSE
     Indication: PRODUCT USED FOR UNKNOWN INDICATION
     Dosage: UNK
     Route: 042
     Dates: start: 20191212, end: 20191212

REACTIONS (5)
  - Diarrhoea [Unknown]
  - Abdominal distension [Unknown]
  - Flatulence [Unknown]
  - Personality change [Unknown]
  - Back pain [Unknown]

NARRATIVE: CASE EVENT DATE: 20191220
